FAERS Safety Report 5297858-3 (Version None)
Quarter: 2007Q2

REPORT INFORMATION
  Report Type: 
  Country: None (occurrence: None)
  Receive Date: 20070416
  Receipt Date: 20070402
  Transmission Date: 20071010
  Serious: Yes (Hospitalization, Disabling, Other)
  Sender: FDA-Public Use
  Company Number: US-ELI_LILLY_AND_COMPANY-US200703001148

PATIENT
  Age: 81 Year
  Sex: Female
  Weight: 44.897 kg

DRUGS (3)
  1. EVISTA [Suspect]
     Indication: OSTEOPOROSIS
     Dosage: 60 MG, UNKNOWN
     Route: 048
     Dates: start: 20020101
  2. CALCIUM CARBONATE + VITAMIN D [Concomitant]
     Dates: start: 20020101
  3. DEXTROL [Concomitant]
     Dosage: 4 MG, UNK

REACTIONS (2)
  - FALL [None]
  - HIP FRACTURE [None]
